FAERS Safety Report 21501443 (Version 2)
Quarter: 2022Q4

REPORT INFORMATION
  Report Type: Spontaneous
  Country: EG (occurrence: EG)
  Receive Date: 20221025
  Receipt Date: 20221031
  Transmission Date: 20230113
  Serious: Yes (Other)
  Sender: FDA-Public Use
  Company Number: EG-NOVOPROD-969890

PATIENT
  Age: 800 Month
  Sex: Female
  Weight: 90 kg

DRUGS (13)
  1. INDAMIDE [Concomitant]
     Indication: Hypertension
     Dosage: 1 TAB/DAY
     Route: 048
     Dates: start: 202210
  2. SPIRONOLACTONE [Concomitant]
     Active Substance: SPIRONOLACTONE
     Indication: Hypertension
     Dosage: 1 TAB/DAY
     Route: 048
     Dates: start: 1997
  3. SPIRONOLACTONE [Concomitant]
     Active Substance: SPIRONOLACTONE
     Indication: Diuretic therapy
  4. ATORVASTATIN CALCIUM [Concomitant]
     Active Substance: ATORVASTATIN CALCIUM
     Indication: Hypercholesterolaemia
     Dosage: 1 TAB/DAY STARTED FROM 20 YEARS AGO
     Route: 048
  5. INSULIN HUMAN [Suspect]
     Active Substance: INSULIN HUMAN
     Dosage: 60 IU, QD (40U MORNING -20U NIGHT)
     Route: 058
  6. INSULIN HUMAN [Suspect]
     Active Substance: INSULIN HUMAN
     Indication: Diabetes mellitus
     Dosage: 45 IU, QD (30 IU MORNIG AND 15 IU NIGHT)
     Route: 058
  7. NEWBEZIM [Concomitant]
     Indication: Arthralgia
     Dosage: 2 TAB/DAY
     Route: 048
     Dates: start: 202210
  8. BENFOTIAMINE\CYANOCOBALAMIN\PYRIDOXINE HYDROCHLORIDE [Concomitant]
     Active Substance: BENFOTIAMINE\CYANOCOBALAMIN\PYRIDOXINE HYDROCHLORIDE
     Indication: Vitamin supplementation
     Dosage: 1 TAB/DAY STARTED FROM 4-5 MONTHS AGO
     Route: 048
  9. VILDAGLUSE PLUS [Concomitant]
     Indication: Diabetes mellitus
     Dosage: 2 TAB/DAY STARTED FROM 6-7 MONTHS AGO
     Route: 048
  10. ORTHOGLOBE [Concomitant]
     Indication: Arthralgia
     Dosage: 1 TAB/DAY
     Route: 048
     Dates: start: 202210
  11. METHYLTECNO [Concomitant]
     Indication: Vitamin supplementation
     Dosage: UNK, TWICE DAILY
     Route: 048
  12. METACARDIA [Concomitant]
     Indication: Cardiac disorder
     Dosage: 2 TAB ONCE DAILY
     Route: 048
     Dates: start: 1997
  13. NITROTARD [Concomitant]
     Indication: Cardiac disorder
     Dosage: 2 TAB/DAY
     Route: 048
     Dates: start: 1997

REACTIONS (5)
  - Cataract operation [Recovered/Resolved]
  - Retinopathy [Unknown]
  - Arthropathy [Not Recovered/Not Resolved]
  - Osteitis [Unknown]
  - Hyperglycaemia [Not Recovered/Not Resolved]

NARRATIVE: CASE EVENT DATE: 20220401
